FAERS Safety Report 7269284-9 (Version None)
Quarter: 2011Q1

REPORT INFORMATION
  Report Type: 
  Country: None (occurrence: None)
  Receive Date: 20110202
  Receipt Date: 20110119
  Transmission Date: 20110831
  Serious: Yes (Life-Threatening, Hospitalization, Other)
  Sender: FDA-Public Use
  Company Number: US-ELI_LILLY_AND_COMPANY-US200909003705

PATIENT
  Sex: Female

DRUGS (19)
  1. FORTEO [Suspect]
     Indication: OSTEOPOROSIS
     Dosage: 20 UG, DAILY (1/D)
     Route: 065
     Dates: start: 20090301
  2. FORTEO [Suspect]
     Dosage: 20 UG, DAILY (1/D)
  3. VITAMIN D [Concomitant]
  4. TRAZODONE HCL [Concomitant]
  5. AMIODARONE [Concomitant]
  6. SINGULAIR [Concomitant]
  7. ASPIRIN [Concomitant]
  8. FISH OIL [Concomitant]
  9. NEXIUM [Concomitant]
  10. PLAVIX [Concomitant]
  11. LASIX [Concomitant]
  12. ZOCOR [Concomitant]
  13. DIOVAN [Concomitant]
  14. TOPROL-XL [Concomitant]
  15. BIDIL [Concomitant]
     Indication: BLOOD PRESSURE
  16. PROZAC [Concomitant]
  17. XANAX [Concomitant]
  18. DIGOXIN [Concomitant]
  19. MAGNESIUM OXIDE [Concomitant]

REACTIONS (8)
  - STENT PLACEMENT [None]
  - INFLUENZA [None]
  - PATELLA FRACTURE [None]
  - VASCULAR OCCLUSION [None]
  - PALPITATIONS [None]
  - PAIN [None]
  - CARDIAC ARREST [None]
  - PAIN IN EXTREMITY [None]
